FAERS Safety Report 16863868 (Version 5)
Quarter: 2019Q4

REPORT INFORMATION
  Report Type: Spontaneous
  Country: MX (occurrence: MX)
  Receive Date: 20190927
  Receipt Date: 20191128
  Transmission Date: 20200122
  Serious: Yes (Other)
  Sender: FDA-Public Use
  Company Number: MX-PFIZER INC-2019399153

PATIENT
  Age: 52 Year
  Sex: Female
  Weight: 62.4 kg

DRUGS (14)
  1. SIMETHICONE (DIMETHICONE) [Concomitant]
     Active Substance: DIMETHICONE
     Indication: ABDOMINAL DISTENSION
     Dosage: 300 MG, AS NEEDED
     Route: 048
     Dates: start: 20171024, end: 20190424
  2. IBRANCE [Suspect]
     Active Substance: PALBOCICLIB
     Dosage: 100 MG, CYCLIC (1DF ONCE DAILY FOR EVERY 21 DAYS)
     Dates: start: 20190619, end: 20190710
  3. IBRANCE [Suspect]
     Active Substance: PALBOCICLIB
     Dosage: 100 MG, CYCLIC (FOR 21 DAYS AND 7 DAYS REST)
     Route: 048
     Dates: start: 20190829, end: 20191024
  4. IBRANCE [Suspect]
     Active Substance: PALBOCICLIB
     Dosage: UNK
     Dates: start: 20191031
  5. IBRANCE [Suspect]
     Active Substance: PALBOCICLIB
     Dosage: 100 MG, CYCLIC (100 MG, ONCE A DAY BY 21 DAYS)
     Route: 048
     Dates: start: 20190515, end: 20190605
  6. IBRANCE [Suspect]
     Active Substance: PALBOCICLIB
     Dosage: 1 DF, CYCLIC (1DF ONCE DAILY FOR EVERY 21 DAYS)
     Dates: start: 201907, end: 20190717
  7. ISOGEN PLUS [Concomitant]
     Indication: TYPE 2 DIABETES MELLITUS
     Dosage: UNK, 2X/DAY (513/125 MG, 1 DF IN THE MORNING AND 1/2 DF AT NIGHT)
     Route: 048
     Dates: start: 20180209
  8. LETROZOLE. [Concomitant]
     Active Substance: LETROZOLE
     Indication: BREAST CANCER FEMALE
     Dosage: 2.5 MG, DAILY
     Route: 048
     Dates: start: 20170518
  9. ALKA-SELTZER [Concomitant]
     Active Substance: ANHYDROUS CITRIC ACID\ASPIRIN\SODIUM BICARBONATE
     Indication: ABDOMINAL DISTENSION
     Dosage: 1 DF, AS NEEDED
     Route: 048
     Dates: start: 20181221
  10. IBRANCE [Suspect]
     Active Substance: PALBOCICLIB
     Indication: BREAST CANCER FEMALE
     Dosage: 100 MG, CYCLIC (1 DF DAILY DURING 21 DAYS)
     Route: 048
     Dates: start: 20190410, end: 2019
  11. LOPERAMIDE [Concomitant]
     Active Substance: LOPERAMIDE
     Indication: DIARRHOEA
     Dosage: 2 MG, 3X/DAY
     Route: 048
     Dates: start: 20180412
  12. PINAVERIO [Concomitant]
     Indication: ABDOMINAL DISTENSION
     Dosage: 1 DF, AS NEEDED
     Route: 048
     Dates: start: 20171024, end: 20190424
  13. IBRANCE [Suspect]
     Active Substance: PALBOCICLIB
     Dosage: 100 MG, CYCLIC (1DF ONCE DAILY FOR EVERY 21 DAYS)
     Route: 048
     Dates: start: 20190724, end: 20190821
  14. PARACETAMOL [Concomitant]
     Active Substance: ACETAMINOPHEN
     Indication: PAIN
     Dosage: 1 DF, 500 MG, AS NEEDED
     Route: 048
     Dates: start: 201701

REACTIONS (2)
  - Haematotoxicity [Recovered/Resolved]
  - Neutropenia [Recovered/Resolved]

NARRATIVE: CASE EVENT DATE: 20190508
